FAERS Safety Report 8473086 (Version 30)
Quarter: 2016Q3

REPORT INFORMATION
  Report Type: Spontaneous
  Country: CA (occurrence: CA)
  Receive Date: 20120322
  Receipt Date: 20160711
  Transmission Date: 20161109
  Serious: Yes (Hospitalization, Other)
  Sender: FDA-Public Use
  Company Number: CA-ROCHE-1051372

PATIENT
  Age: 82 Year
  Sex: Female
  Weight: 70 kg

DRUGS (15)
  1. PREDNISONE. [Concomitant]
     Active Substance: PREDNISONE
     Indication: PRODUCT USED FOR UNKNOWN INDICATION
     Dosage: 5 MG, UNK
     Route: 065
  2. TYLENOL [Concomitant]
     Active Substance: ACETAMINOPHEN
  3. XOLAIR [Suspect]
     Active Substance: OMALIZUMAB
     Route: 058
     Dates: start: 20150115
  4. XOLAIR [Suspect]
     Active Substance: OMALIZUMAB
     Route: 058
     Dates: start: 20150129
  5. XOLAIR [Suspect]
     Active Substance: OMALIZUMAB
     Route: 058
     Dates: start: 20160324
  6. VENTOLIN [Concomitant]
     Active Substance: ALBUTEROL SULFATE
     Indication: PRODUCT USED FOR UNKNOWN INDICATION
     Route: 065
  7. SINGULAIR [Concomitant]
     Active Substance: MONTELUKAST SODIUM
     Indication: PRODUCT USED FOR UNKNOWN INDICATION
     Route: 065
  8. XOLAIR [Suspect]
     Active Substance: OMALIZUMAB
     Route: 058
     Dates: start: 20150102
  9. XOLAIR [Suspect]
     Active Substance: OMALIZUMAB
     Route: 058
     Dates: start: 20160128
  10. ALOVENT [Concomitant]
     Indication: PRODUCT USED FOR UNKNOWN INDICATION
     Route: 065
  11. XOLAIR [Suspect]
     Active Substance: OMALIZUMAB
     Route: 058
     Dates: start: 20121122
  12. XOLAIR [Suspect]
     Active Substance: OMALIZUMAB
     Route: 058
     Dates: start: 20150312
  13. ADVAIR HFA [Concomitant]
     Active Substance: FLUTICASONE PROPIONATE\SALMETEROL XINAFOATE
     Indication: PRODUCT USED FOR UNKNOWN INDICATION
     Route: 065
  14. XOLAIR [Suspect]
     Active Substance: OMALIZUMAB
     Indication: ASTHMA
     Route: 058
     Dates: start: 20100803
  15. XOLAIR [Suspect]
     Active Substance: OMALIZUMAB
     Route: 058
     Dates: start: 20160506

REACTIONS (32)
  - Pulmonary oedema [Unknown]
  - Respiratory rate increased [Unknown]
  - Rhinorrhoea [Recovering/Resolving]
  - Cardiac disorder [Unknown]
  - Sputum discoloured [Unknown]
  - Influenza [Unknown]
  - Malaise [Unknown]
  - Laceration [Unknown]
  - Sleep terror [Unknown]
  - Pleurisy [Unknown]
  - Asthma [Unknown]
  - Lung infection [Unknown]
  - Insomnia [Unknown]
  - Nausea [Recovering/Resolving]
  - Neck pain [Unknown]
  - Toothache [Unknown]
  - Decreased appetite [Unknown]
  - Bronchitis [Not Recovered/Not Resolved]
  - Nasopharyngitis [Unknown]
  - Lower respiratory tract congestion [Unknown]
  - Headache [Unknown]
  - Pain in extremity [Unknown]
  - Musculoskeletal pain [Unknown]
  - Weight decreased [Not Recovered/Not Resolved]
  - Haemorrhage [Unknown]
  - Back pain [Unknown]
  - Epistaxis [Unknown]
  - Blood pressure systolic increased [Unknown]
  - Productive cough [Recovering/Resolving]
  - Respiratory disorder [Unknown]
  - Fall [Unknown]
  - Asthenia [Unknown]

NARRATIVE: CASE EVENT DATE: 20120314
